FAERS Safety Report 24411616 (Version 1)
Quarter: 2024Q4

REPORT INFORMATION
  Report Type: Spontaneous
  Country: US (occurrence: US)
  Receive Date: 20241008
  Receipt Date: 20241008
  Transmission Date: 20250115
  Serious: No
  Sender: DR REDDYS
  Company Number: None

PATIENT
  Age: 6 Decade
  Sex: Male

DRUGS (3)
  1. OLANZAPINE [Suspect]
     Active Substance: OLANZAPINE
     Indication: Initial insomnia
     Dosage: NIGHTLY
     Route: 048
  2. TAMSULOSIN [Suspect]
     Active Substance: TAMSULOSIN
     Indication: Nocturia
  3. TAMSULOSIN [Suspect]
     Active Substance: TAMSULOSIN
     Indication: Urine flow decreased

REACTIONS (2)
  - Pollakiuria [Recovered/Resolved]
  - Off label use [Recovered/Resolved]
